FAERS Safety Report 10230758 (Version 1)
Quarter: 2014Q2

REPORT INFORMATION
  Report Type: Report from Study
  Country: PK (occurrence: PK)
  Receive Date: 20140611
  Receipt Date: 20140611
  Transmission Date: 20141212
  Serious: Yes (Other)
  Sender: FDA-Public Use
  Company Number: PK-SA-2014SA074977

PATIENT
  Age: 58 Year
  Sex: Female
  Weight: 80 kg

DRUGS (7)
  1. LANTUS [Suspect]
     Indication: TYPE 2 DIABETES MELLITUS
     Dosage: DOSE:30 UNIT(S)
     Route: 058
     Dates: start: 2011
  2. LANTUS [Suspect]
     Indication: TYPE 2 DIABETES MELLITUS
     Dosage: DOSE:45 UNIT(S)
     Route: 058
     Dates: start: 2013
  3. AMARYL M SR [Suspect]
     Indication: TYPE 2 DIABETES MELLITUS
     Dosage: 2/500 MG
     Route: 048
     Dates: start: 201403
  4. BISOPROLOL [Concomitant]
     Indication: HYPERTENSION
     Route: 048
     Dates: start: 2012
  5. CYANOCOBALAMIN [Concomitant]
     Indication: VIITH NERVE PARALYSIS
     Dosage: 1 INJ ON ALTERNATE DAY
     Route: 030
     Dates: start: 20140525
  6. XANAX [Concomitant]
     Indication: ANXIETY
     Route: 048
     Dates: start: 2012
  7. EVION [Concomitant]
     Indication: VITAMIN E
     Dosage: 400 IU/3 TIMES /WEEK
     Route: 048
     Dates: start: 201405

REACTIONS (7)
  - Lipoma excision [Unknown]
  - VIIth nerve paralysis [Unknown]
  - Blood glucose abnormal [Not Recovered/Not Resolved]
  - Drug ineffective [Unknown]
  - Diabetes mellitus inadequate control [None]
  - Blood glucose increased [None]
  - Glycosylated haemoglobin increased [None]
